FAERS Safety Report 26111899 (Version 1)
Quarter: 2025Q4

REPORT INFORMATION
  Report Type: Spontaneous
  Country: CN (occurrence: CN)
  Receive Date: 20251202
  Receipt Date: 20251202
  Transmission Date: 20260118
  Serious: Yes (Hospitalization)
  Sender: ROCHE
  Company Number: CN-ROCHE-10000445515

PATIENT
  Age: 75 Year
  Sex: Male

DRUGS (2)
  1. ATEZOLIZUMAB [Suspect]
     Active Substance: ATEZOLIZUMAB
     Indication: Rectal adenocarcinoma
     Route: 042
  2. BEVACIZUMAB [Concomitant]
     Active Substance: BEVACIZUMAB
     Indication: Rectal adenocarcinoma
     Route: 042
     Dates: start: 20251104, end: 20251104

REACTIONS (2)
  - Fatigue [Not Recovered/Not Resolved]
  - Protein total decreased [Unknown]

NARRATIVE: CASE EVENT DATE: 20251111
